FAERS Safety Report 4316900-7 (Version None)
Quarter: 2004Q1

REPORT INFORMATION
  Report Type: 
  Country: None (occurrence: None)
  Receive Date: 20040309
  Receipt Date: 20031110
  Transmission Date: 20041129
  Serious: Yes (Other)
  Sender: FDA-Public Use
  Company Number: A03200302503

PATIENT
  Age: 74 Year
  Sex: Female
  Weight: 73.9817 kg

DRUGS (9)
  1. ELOXATIN [Suspect]
     Indication: COLON CANCER STAGE IV
     Dosage: 150 MG OTHER - INTRAVENOUS NOS
     Route: 042
     Dates: start: 20031020, end: 20031020
  2. FLUOROURACIL [Concomitant]
  3. LEUCOVORIN [Concomitant]
  4. GRANISETRON [Concomitant]
  5. DEXAMETHASONE [Concomitant]
  6. WARFARIN SODIUM [Concomitant]
  7. ACETAMINOPHEN AND HYDROCODONE [Concomitant]
  8. ZOLPIDEM TARTRATE [Concomitant]
  9. NAPROXEN [Concomitant]

REACTIONS (5)
  - CHEST PAIN [None]
  - HYPOTENSION [None]
  - ORAL DISCOMFORT [None]
  - THROAT IRRITATION [None]
  - URTICARIA [None]
